FAERS Safety Report 20320251 (Version 1)
Quarter: 2022Q1

REPORT INFORMATION
  Report Type: Spontaneous
  Country: CO (occurrence: CO)
  Receive Date: 20220111
  Receipt Date: 20220111
  Transmission Date: 20220424
  Serious: Yes (Death)
  Sender: FDA-Public Use
  Company Number: CO-AstraZeneca-2021A909573

PATIENT

DRUGS (1)
  1. ZOLADEX [Suspect]
     Active Substance: GOSERELIN ACETATE
     Indication: Prostate cancer
     Dosage: 10.8 MILLIGRAM, EVERY 3 MONTHS
     Route: 058
     Dates: start: 20210608, end: 20211126

REACTIONS (1)
  - Death [Fatal]

NARRATIVE: CASE EVENT DATE: 20211126
